FAERS Safety Report 12587796 (Version 2)
Quarter: 2016Q3

REPORT INFORMATION
  Report Type: Spontaneous
  Country: US (occurrence: US)
  Receive Date: 20160725
  Receipt Date: 20160803
  Transmission Date: 20161109
  Serious: Yes (Other)
  Sender: FDA-Public Use
  Company Number: US-BRISTOL-MYERS SQUIBB COMPANY-BMS-2016-059192

PATIENT
  Age: 84 Year
  Sex: Female
  Weight: 63.5 kg

DRUGS (2)
  1. SPRYCEL [Suspect]
     Active Substance: DASATINIB
     Indication: CHRONIC MYELOID LEUKAEMIA
     Dosage: 100 MG, QD
     Route: 048
     Dates: start: 20160407
  2. SPRYCEL [Suspect]
     Active Substance: DASATINIB
     Dosage: 100 MG, UNK
     Route: 048
     Dates: start: 20160702

REACTIONS (11)
  - Asthenia [Unknown]
  - Faeces hard [Unknown]
  - Anaemia [Unknown]
  - Decreased appetite [Unknown]
  - Insomnia [Unknown]
  - Pleural effusion [Unknown]
  - Fatigue [Unknown]
  - Drug dose omission [Unknown]
  - Discomfort [Unknown]
  - Hyponatraemia [Unknown]
  - Myalgia [Unknown]

NARRATIVE: CASE EVENT DATE: 20160711
